FAERS Safety Report 8184158-7 (Version None)
Quarter: 2012Q1

REPORT INFORMATION
  Report Type: 
  Country: None (occurrence: None)
  Receive Date: 20120305
  Receipt Date: 20120111
  Transmission Date: 20120608
  Serious: No
  Sender: FDA-Public Use
  Company Number: US-ABBOTT-12P-163-0892542-00

PATIENT
  Sex: Female

DRUGS (1)
  1. BIAXIN XL [Suspect]
     Indication: SINUSITIS
     Dosage: 500MG XL

REACTIONS (1)
  - ABDOMINAL PAIN UPPER [None]
